FAERS Safety Report 6399343-4 (Version None)
Quarter: 2009Q4

REPORT INFORMATION
  Report Type: 
  Country: None (occurrence: None)
  Receive Date: 20091014
  Receipt Date: 20070530
  Transmission Date: 20100525
  Serious: Yes (Hospitalization, Disabling, Other)
  Sender: FDA-Public Use
  Company Number: US-ASTRAZENECA-2006UW12332

PATIENT
  Age: 46 Year
  Sex: Female
  Weight: 99.8 kg

DRUGS (18)
  1. SEROQUEL [Suspect]
     Indication: DEPRESSION
     Route: 048
     Dates: start: 19990101
  2. SEROQUEL [Suspect]
     Route: 048
     Dates: start: 19990101, end: 20040817
  3. ZYPREXA [Suspect]
  4. TRAZODONE [Concomitant]
     Route: 048
     Dates: start: 19990101
  5. PAXIL [Concomitant]
     Dates: start: 19990101
  6. GEODON [Concomitant]
     Dates: start: 20020101
  7. RISPERDAL [Concomitant]
     Dates: start: 20050329
  8. LEXAPRO [Concomitant]
     Dosage: 10 MG-20 MG
     Route: 048
     Dates: start: 20040817
  9. WELLBUTRIN [Concomitant]
     Dates: start: 20040504, end: 20040817
  10. CLONIDINE [Concomitant]
     Dosage: 0.4 MG-0.9 MG
     Route: 048
     Dates: start: 20040504
  11. COZAAR [Concomitant]
     Dates: start: 20040814
  12. NORVASC [Concomitant]
     Dosage: 5 MG-20 MG
     Dates: start: 20050329
  13. GLUCOPHAGE [Concomitant]
     Dates: start: 20040817
  14. ATENOLOL [Concomitant]
     Dosage: 50 MG-100 MG
     Dates: start: 20040504
  15. HYDROCHLOROTHIAZIDE [Concomitant]
     Dates: start: 20040817
  16. HYDRALAZINE HCL [Concomitant]
     Dates: start: 20040817
  17. GLYBURIDE [Concomitant]
     Dates: start: 20040504
  18. ABILIFY [Concomitant]
     Dates: start: 20040817

REACTIONS (6)
  - DIABETES MELLITUS [None]
  - DIABETIC RETINOPATHY [None]
  - HALLUCINATION, VISUAL [None]
  - HYPERTENSION [None]
  - TYPE 2 DIABETES MELLITUS [None]
  - WEIGHT INCREASED [None]
